FAERS Safety Report 5079981-1 (Version None)
Quarter: 2006Q3

REPORT INFORMATION
  Report Type: 
  Country: None (occurrence: None)
  Receive Date: 20060720
  Receipt Date: 20050705
  Transmission Date: 20061208
  Serious: Yes (Hospitalization)
  Sender: FDA-Public Use
  Company Number: 2005100081

PATIENT
  Age: 60 Year
  Sex: Male
  Weight: 76.3 kg

DRUGS (4)
  1. CELEBREX [Suspect]
     Indication: ILL-DEFINED DISORDER
     Dates: start: 20041101
  2. ZOCOR [Concomitant]
  3. ISORDIL [Concomitant]
  4. ASPIRIN [Concomitant]

REACTIONS (3)
  - MITRAL VALVE INCOMPETENCE [None]
  - MYOCARDIAL INFARCTION [None]
  - VENTRICULAR TACHYCARDIA [None]
